FAERS Safety Report 9791955 (Version 1)
Quarter: 2014Q1

REPORT INFORMATION
  Report Type: Not Available
  Country: GB (occurrence: GB)
  Receive Date: 20140102
  Receipt Date: 20140102
  Transmission Date: 20141002
  Serious: Yes (Other)
  Sender: FDA-Public Use
  Company Number: GB-ASTELLAS-2013EU011556

PATIENT
  Age: 36 Year
  Sex: Female
  Weight: 73.02 kg

DRUGS (2)
  1. SOLIFENACIN [Suspect]
     Indication: MICTURITION URGENCY
     Dosage: 5 MG, UNKNOWN/D
     Route: 048
     Dates: start: 201304, end: 201305
  2. TRINOVUM [Concomitant]
     Indication: CONTRACEPTION
     Dosage: UNK
     Route: 048

REACTIONS (3)
  - Dyspnoea [Unknown]
  - Generalised oedema [Recovered/Resolved]
  - Wheezing [Unknown]
